FAERS Safety Report 10910619 (Version 2)
Quarter: 2016Q1

REPORT INFORMATION
  Report Type: Spontaneous
  Country: US (occurrence: US)
  Receive Date: 20150312
  Receipt Date: 20160322
  Transmission Date: 20160525
  Serious: No
  Sender: FDA-Public Use
  Company Number: US-SA-2015SA003788

PATIENT
  Sex: Male

DRUGS (2)
  1. NASACORT ALLERGY 24HR [Suspect]
     Active Substance: TRIAMCINOLONE ACETONIDE
     Indication: HOUSE DUST ALLERGY
     Dosage: 55 MCG/SPRAY
     Route: 065
  2. BREATHE-AID [Concomitant]
     Active Substance: EPHEDRA

REACTIONS (1)
  - Therapeutic response decreased [Unknown]
